FAERS Safety Report 4607375-9 (Version None)
Quarter: 2005Q1

REPORT INFORMATION
  Report Type: 
  Country: None (occurrence: None)
  Receive Date: 20050311
  Receipt Date: 20050311
  Transmission Date: 20050727
  Serious: Yes (Life-Threatening, Hospitalization)
  Sender: FDA-Public Use
  Company Number: None

PATIENT
  Age: 59 Year
  Sex: Male
  Weight: 65 kg

DRUGS (2)
  1. HUMULIN 70/30 [Suspect]
     Indication: DIABETES MELLITUS
     Dosage: 20 UNITS @ 5PM  / 40 UNITS  @ 6AM
     Dates: start: 20041125, end: 20041130
  2. REGULAR INSULIN [Suspect]
     Indication: DIABETES MELLITUS
     Dosage: 6 UNITS SC
     Route: 058
     Dates: start: 20041130

REACTIONS (6)
  - BLOOD GLUCOSE DECREASED [None]
  - BLOOD GLUCOSE INCREASED [None]
  - COLD SWEAT [None]
  - COMA [None]
  - FEELING COLD [None]
  - HYPERHIDROSIS [None]
